FAERS Safety Report 26087453 (Version 1)
Quarter: 2025Q4

REPORT INFORMATION
  Report Type: Spontaneous
  Country: EU (occurrence: EU)
  Receive Date: 20251125
  Receipt Date: 20251125
  Transmission Date: 20260118
  Serious: Yes (Other)
  Sender: PFIZER
  Company Number: None

PATIENT
  Age: 94 Year
  Sex: Female
  Weight: 51 kg

DRUGS (7)
  1. CLINDAMYCIN HYDROCHLORIDE [Suspect]
     Active Substance: CLINDAMYCIN HYDROCHLORIDE
     Indication: Urinary tract infection
     Dosage: UNKNOWN
     Route: 048
     Dates: start: 20251007, end: 20251008
  2. CIPROFLOXACIN [Suspect]
     Active Substance: CIPROFLOXACIN
     Indication: Urinary tract infection
     Dosage: FREQ:12 H; 1 TABLET TWICE DAILY
     Route: 048
     Dates: start: 20251007
  3. METOPROLOL [Concomitant]
     Active Substance: METOPROLOL
     Dosage: UNK
     Route: 048
  4. CHOLECALCIFEROL [Concomitant]
     Active Substance: CHOLECALCIFEROL
     Dosage: UNK
     Route: 048
  5. BARNIDIPINE [Concomitant]
     Active Substance: BARNIDIPINE
     Dosage: UNK
     Route: 048
  6. PANTOPRAZOLE [Concomitant]
     Active Substance: PANTOPRAZOLE
     Dosage: UNK
     Route: 048
  7. CARBOMER [Concomitant]
     Active Substance: CARBOMER
     Dosage: UNK
     Route: 047

REACTIONS (12)
  - Iron deficiency [Recovering/Resolving]
  - Hallucination [Recovering/Resolving]
  - Hypoxia [Recovering/Resolving]
  - Anaemia [Recovering/Resolving]
  - Sepsis [Recovering/Resolving]
  - Diarrhoea [Recovering/Resolving]
  - Pyrexia [Recovering/Resolving]
  - Hypotension [Recovering/Resolving]
  - Dizziness [Recovering/Resolving]
  - Fatigue [Not Recovered/Not Resolved]
  - Confusional state [Not Recovered/Not Resolved]
  - Gingival erythema [Not Recovered/Not Resolved]
